FAERS Safety Report 7826398-X (Version None)
Quarter: 2011Q4

REPORT INFORMATION
  Report Type: 
  Country: None (occurrence: None)
  Receive Date: 20111020
  Receipt Date: 20111017
  Transmission Date: 20120403
  Serious: No
  Sender: FDA-Public Use
  Company Number: US-BIOGENIDEC-2011BI039582

PATIENT
  Age: 57 Year
  Sex: Female

DRUGS (1)
  1. TYSABRI [Suspect]
     Indication: MULTIPLE SCLEROSIS
     Route: 042
     Dates: start: 20110506

REACTIONS (13)
  - DYSPNOEA [None]
  - VOMITING [None]
  - ASTHENIA [None]
  - DIZZINESS [None]
  - PERONEAL NERVE PALSY [None]
  - WEIGHT INCREASED [None]
  - GAIT DISTURBANCE [None]
  - DYSSTASIA [None]
  - NAUSEA [None]
  - PAIN IN EXTREMITY [None]
  - MUSCLE SPASMS [None]
  - MOBILITY DECREASED [None]
  - GRANULOMA ANNULARE [None]
